FAERS Safety Report 18224978 (Version 2)
Quarter: 2020Q3

REPORT INFORMATION
  Report Type: Spontaneous
  Country: CL (occurrence: CL)
  Receive Date: 20200903
  Receipt Date: 20200911
  Transmission Date: 20201103
  Serious: Yes (Other)
  Sender: FDA-Public Use
  Company Number: CL-ROCHE-2663641

PATIENT
  Sex: Female

DRUGS (5)
  1. ELCAL D [Concomitant]
     Active Substance: CALCIUM CARBONATE\CHOLECALCIFEROL
  2. DEXAMETHASONE. [Concomitant]
     Active Substance: DEXAMETHASONE
  3. KADCYLA [Suspect]
     Active Substance: ADO-TRASTUZUMAB EMTANSINE
     Indication: BREAST CANCER METASTATIC
     Dosage: 3.6 MG/KG
     Route: 042
     Dates: start: 202006
  4. PREGABALIN. [Concomitant]
     Active Substance: PREGABALIN
  5. EXEMESTANE. [Concomitant]
     Active Substance: EXEMESTANE

REACTIONS (3)
  - Administration site extravasation [Recovered/Resolved]
  - Erythema [Recovered/Resolved]
  - Chemical burn [Recovered/Resolved]

NARRATIVE: CASE EVENT DATE: 20200811
